FAERS Safety Report 15405987 (Version 1)
Quarter: 2018Q3

REPORT INFORMATION
  Report Type: Spontaneous
  Country: US (occurrence: US)
  Receive Date: 20180920
  Receipt Date: 20180920
  Transmission Date: 20181010
  Serious: No
  Sender: FDA-Public Use
  Company Number: US-PFIZER INC-2018378457

PATIENT
  Age: 61 Year
  Sex: Female
  Weight: 100 kg

DRUGS (2)
  1. GABAPENTIN. [Concomitant]
     Active Substance: GABAPENTIN
     Indication: INTERVERTEBRAL DISC INJURY
     Dosage: 300 MG, 1X/DAY
     Dates: start: 20180614
  2. LYRICA [Suspect]
     Active Substance: PREGABALIN
     Indication: BURNING SENSATION
     Dosage: 50 MG, 2X/DAY
     Dates: start: 20180614

REACTIONS (4)
  - Pain [Unknown]
  - Peripheral swelling [Unknown]
  - Anaemia [Unknown]
  - Blood potassium decreased [Unknown]
